FAERS Safety Report 18032079 (Version 1)
Quarter: 2020Q3

REPORT INFORMATION
  Report Type: Spontaneous
  Country: US (occurrence: US)
  Receive Date: 20200716
  Receipt Date: 20200716
  Transmission Date: 20201103
  Serious: Yes (Death)
  Sender: FDA-Public Use
  Company Number: None

PATIENT
  Age: 53 Year
  Sex: Female

DRUGS (7)
  1. TEMOZOLOMIDE. [Suspect]
     Active Substance: TEMOZOLOMIDE
     Indication: BRAIN CANCER METASTATIC
     Route: 048
     Dates: start: 20200217
  2. LEVETIRACETA [Concomitant]
     Active Substance: LEVETIRACETAM
  3. ONDANSETRON [Concomitant]
     Active Substance: ONDANSETRON
  4. OMEPRAZOLE. [Concomitant]
     Active Substance: OMEPRAZOLE
  5. HUMALOG [Concomitant]
     Active Substance: INSULIN LISPRO
  6. DEXAMETHASON [Concomitant]
     Active Substance: DEXAMETHASONE
  7. METFORMIN [Concomitant]
     Active Substance: METFORMIN HYDROCHLORIDE

REACTIONS (1)
  - Death [None]
